FAERS Safety Report 8955066 (Version 2)
Quarter: 2013Q1

REPORT INFORMATION
  Report Type: Spontaneous
  Country: GB (occurrence: GB)
  Receive Date: 20121207
  Receipt Date: 20130314
  Transmission Date: 20140127
  Serious: Yes (Disabling, Other)
  Sender: FDA-Public Use
  Company Number: GB-ABBOTT-12P-167-1018696-00

PATIENT
  Age: 15 Year
  Sex: Male
  Weight: 41.2 kg

DRUGS (4)
  1. HUMIRA [Suspect]
     Indication: JUVENILE IDIOPATHIC ARTHRITIS
  2. ENBREL [Suspect]
     Indication: JUVENILE IDIOPATHIC ARTHRITIS
     Dates: start: 201205, end: 201208
  3. METHOTREXATE [Concomitant]
     Indication: JUVENILE IDIOPATHIC ARTHRITIS
     Dates: start: 2011
  4. FOLIC ACID [Concomitant]
     Indication: PROPHYLAXIS
     Dates: start: 2011

REACTIONS (2)
  - Malaise [Recovered/Resolved]
  - Malaise [Recovered/Resolved]
